FAERS Safety Report 17820366 (Version 1)
Quarter: 2020Q2

REPORT INFORMATION
  Report Type: Spontaneous
  Country: US (occurrence: US)
  Receive Date: 20200525
  Receipt Date: 20200525
  Transmission Date: 20200714
  Serious: Yes (Hospitalization)
  Sender: FDA-Public Use
  Company Number: US-ROCHE-2606016

PATIENT
  Age: 50 Year
  Sex: Female

DRUGS (17)
  1. CALCIUM [Concomitant]
     Active Substance: CALCIUM
  2. LISINOPRIL. [Concomitant]
     Active Substance: LISINOPRIL
  3. ATENOLOL. [Concomitant]
     Active Substance: ATENOLOL
  4. CYCLOBENZAPRINE. [Concomitant]
     Active Substance: CYCLOBENZAPRINE
  5. LYRICA [Concomitant]
     Active Substance: PREGABALIN
  6. PREDNISONE. [Concomitant]
     Active Substance: PREDNISONE
  7. BUSPIRONE [Concomitant]
     Active Substance: BUSPIRONE HYDROCHLORIDE
  8. ACTEMRA [Suspect]
     Active Substance: TOCILIZUMAB
     Indication: RHEUMATOID ARTHRITIS
     Dosage: 0.9 MG/ML
     Route: 030
     Dates: start: 20200417
  9. DULOXETINE. [Concomitant]
     Active Substance: DULOXETINE
  10. HORIZANT [Concomitant]
     Active Substance: GABAPENTIN ENACARBIL
  11. OXYCODONE [Concomitant]
     Active Substance: OXYCODONE
  12. FENTANYL. [Concomitant]
     Active Substance: FENTANYL
  13. METHOTREXATE. [Concomitant]
     Active Substance: METHOTREXATE
  14. AMPHETAMINE [Concomitant]
     Active Substance: AMPHETAMINE
  15. XELJANZ [Suspect]
     Active Substance: TOFACITINIB CITRATE
     Indication: RHEUMATOID ARTHRITIS
     Route: 048
     Dates: start: 20191011
  16. DICLOFENAC [Concomitant]
     Active Substance: DICLOFENAC
  17. PERCOCET [Concomitant]
     Active Substance: ACETAMINOPHEN\OXYCODONE HYDROCHLORIDE

REACTIONS (1)
  - Cerebrovascular accident [Unknown]

NARRATIVE: CASE EVENT DATE: 20200417
